FAERS Safety Report 21513306 (Version 1)
Quarter: 2022Q4

REPORT INFORMATION
  Report Type: Spontaneous
  Country: CN (occurrence: CN)
  Receive Date: 20221027
  Receipt Date: 20221027
  Transmission Date: 20230112
  Serious: Yes (Other)
  Sender: FDA-Public Use
  Company Number: CN-TEVA-2022-CN-2818195

PATIENT
  Age: 70 Year
  Sex: Female

DRUGS (3)
  1. ALFACALCIDOL [Suspect]
     Active Substance: ALFACALCIDOL
     Indication: Intervertebral disc protrusion
     Dosage: 1 DOSAGE FORMS DAILY;
     Route: 048
     Dates: start: 20221006, end: 20221008
  2. CELECOXIB [Suspect]
     Active Substance: CELECOXIB
     Indication: Intervertebral disc protrusion
     Dosage: 1 DOSAGE FORMS DAILY;
     Route: 048
     Dates: start: 20221006, end: 20221010
  3. METHYLCOBALAMIN [Concomitant]
     Active Substance: METHYLCOBALAMIN
     Indication: Intervertebral disc protrusion
     Dates: start: 20221005, end: 20221008

REACTIONS (1)
  - Urticaria [Recovering/Resolving]

NARRATIVE: CASE EVENT DATE: 20221006
